FAERS Safety Report 6355210-3 (Version None)
Quarter: 2009Q3

REPORT INFORMATION
  Report Type: 
  Country: None (occurrence: None)
  Receive Date: 20090914
  Receipt Date: 20090903
  Transmission Date: 20100115
  Serious: Yes (Other)
  Sender: FDA-Public Use
  Company Number: US-JNJFOC-20090901968

PATIENT
  Age: 15 Year
  Sex: Male

DRUGS (5)
  1. REMICADE [Suspect]
     Route: 042
  2. REMICADE [Suspect]
     Route: 042
  3. REMICADE [Suspect]
     Indication: CROHN'S DISEASE
     Route: 042
  4. PREDNISONE [Concomitant]
     Indication: PREMEDICATION
  5. OTHER THERAPEUTIC PRODUCT [Concomitant]
     Indication: PREMEDICATION

REACTIONS (3)
  - DYSPHAGIA [None]
  - INFUSION RELATED REACTION [None]
  - SWELLING FACE [None]
